FAERS Safety Report 24232369 (Version 2)
Quarter: 2024Q3

REPORT INFORMATION
  Report Type: Spontaneous
  Country: PL (occurrence: PL)
  Receive Date: 20240821
  Receipt Date: 20240903
  Transmission Date: 20241017
  Serious: Yes (Other)
  Sender: PFIZER
  Company Number: PL-009507513-2408POL001447

PATIENT
  Age: 66 Year
  Sex: Female

DRUGS (3)
  1. CARBOPLATIN [Suspect]
     Active Substance: CARBOPLATIN
     Indication: Squamous cell carcinoma of lung
     Dosage: AREA UNDER THE CURVE (AUC) OF 6 MG/ML/MIN], EVERY 21 DAYS
     Dates: start: 20230301
  2. PEMBROLIZUMAB [Suspect]
     Active Substance: PEMBROLIZUMAB
     Indication: Squamous cell carcinoma of lung
     Dosage: 200 MG, EVERY 21 DAYS
     Route: 042
     Dates: start: 2021
  3. PACLITAXEL [Suspect]
     Active Substance: PACLITAXEL
     Indication: Squamous cell carcinoma of lung
     Dosage: 200 MG/M2, EVERY 21 DAYS
     Route: 042
     Dates: start: 20230301

REACTIONS (2)
  - Anaemia [Unknown]
  - Off label use [Unknown]

NARRATIVE: CASE EVENT DATE: 20230101
